FAERS Safety Report 20904753 (Version 1)
Quarter: 2022Q2

REPORT INFORMATION
  Report Type: Spontaneous
  Country: NL (occurrence: NL)
  Receive Date: 20220602
  Receipt Date: 20220602
  Transmission Date: 20220721
  Serious: Yes (Other)
  Sender: FDA-Public Use
  Company Number: NL-LUPIN PHARMACEUTICALS INC.-2022-07895

PATIENT
  Age: 74 Year
  Sex: Male

DRUGS (2)
  1. CLOBETASOL [Suspect]
     Active Substance: CLOBETASOL
     Indication: Pyoderma gangrenosum
     Dosage: UNK, 0.5 MG/G, CLOBETASOL CREAM
     Route: 003
  2. PREDNISOLONE [Suspect]
     Active Substance: PREDNISOLONE
     Indication: Pyoderma gangrenosum
     Dosage: 1 MILLIGRAM/KILOGRAM

REACTIONS (5)
  - Klebsiella infection [Recovered/Resolved]
  - Herpes simplex [Unknown]
  - Steroid diabetes [Unknown]
  - Drug ineffective for unapproved indication [Unknown]
  - Off label use [Unknown]
